FAERS Safety Report 14094511 (Version 3)
Quarter: 2019Q3

REPORT INFORMATION
  Report Type: Spontaneous
  Country: US (occurrence: US)
  Receive Date: 20171016
  Receipt Date: 20190717
  Transmission Date: 20191004
  Serious: Yes (Other)
  Sender: FDA-Public Use
  Company Number: US-PFIZER INC-2017446594

PATIENT
  Age: 59 Year
  Sex: Female
  Weight: 74.84 kg

DRUGS (1)
  1. LYRICA [Suspect]
     Active Substance: PREGABALIN
     Indication: FIBROMYALGIA
     Dosage: 50 MG, 3X/DAY
     Route: 048
     Dates: start: 201609

REACTIONS (10)
  - Malaise [Unknown]
  - Fibromyalgia [Unknown]
  - Product dose omission [Not Recovered/Not Resolved]
  - Arthralgia [Unknown]
  - Lethargy [Not Recovered/Not Resolved]
  - Hypersomnia [Unknown]
  - Pruritus generalised [Not Recovered/Not Resolved]
  - Lower limb fracture [Unknown]
  - Condition aggravated [Unknown]
  - Vision blurred [Not Recovered/Not Resolved]

NARRATIVE: CASE EVENT DATE: 2017
